FAERS Safety Report 21298861 (Version 5)
Quarter: 2022Q4

REPORT INFORMATION
  Report Type: Spontaneous
  Country: JP (occurrence: JP)
  Receive Date: 20220906
  Receipt Date: 20221115
  Transmission Date: 20230113
  Serious: Yes (Hospitalization, Disabling, Other)
  Sender: FDA-Public Use
  Company Number: JP-MSD-M2022-29959

PATIENT
  Age: 65 Year
  Sex: Male
  Weight: 60 kg

DRUGS (13)
  1. LAGEVRIO [Suspect]
     Active Substance: MOLNUPIRAVIR
     Indication: COVID-19 treatment
     Dosage: 800 MILLIGRAM, BID
     Route: 048
     Dates: start: 20220713, end: 202207
  2. AMLODIPINE BESYLATE\IRBESARTAN [Concomitant]
     Active Substance: AMLODIPINE BESYLATE\IRBESARTAN
     Dosage: UNK
     Route: 048
  3. METFORMIN HYDROCHLORIDE\VILDAGLIPTIN [Concomitant]
     Active Substance: METFORMIN HYDROCHLORIDE\VILDAGLIPTIN
     Dosage: UNK
     Route: 048
  4. ROSUVASTATIN CALCIUM [Concomitant]
     Active Substance: ROSUVASTATIN CALCIUM
     Dosage: UNK
     Route: 048
  5. MITIGLINIDE CALCIUM ANHYDROUS [Concomitant]
     Active Substance: MITIGLINIDE CALCIUM ANHYDROUS
     Dosage: UNK
     Route: 048
  6. CILNIDIPINE [Concomitant]
     Active Substance: CILNIDIPINE
     Dosage: UNK
     Route: 048
  7. SILODOSIN OD [Concomitant]
     Dosage: UNK
     Route: 048
  8. MIRABEGRON [Concomitant]
     Active Substance: MIRABEGRON
     Dosage: UNK
     Route: 048
  9. LANSOPRAZOLE [Concomitant]
     Active Substance: LANSOPRAZOLE
     Dosage: UNK
     Route: 048
  10. PREDNISOLONE [Concomitant]
     Active Substance: PREDNISOLONE
     Dosage: UNK
     Route: 048
  11. CALONAL [Concomitant]
     Active Substance: ACETAMINOPHEN
     Dosage: UNK
     Route: 048
  12. FERROUS SULFATE [Concomitant]
     Active Substance: FERROUS SULFATE
     Dosage: UNK
     Route: 048
  13. LYNPARZA [Concomitant]
     Active Substance: OLAPARIB
     Indication: Prostate cancer
     Dosage: UNK
     Route: 048
     Dates: start: 20220606, end: 202207

REACTIONS (2)
  - Acute kidney injury [Not Recovered/Not Resolved]
  - Renal tubular disorder [Unknown]

NARRATIVE: CASE EVENT DATE: 20220720
